FAERS Safety Report 6243876-8 (Version None)
Quarter: 2009Q2

REPORT INFORMATION
  Report Type: 
  Country: None (occurrence: None)
  Receive Date: 20090624
  Receipt Date: 20090610
  Transmission Date: 20091009
  Serious: Yes (Death)
  Sender: FDA-Public Use
  Company Number: US-MERCK-0808USA01450B2

PATIENT
  Sex: Male

DRUGS (5)
  1. MAXALT-MLT [Suspect]
     Route: 064
     Dates: start: 20080410
  2. PYRIDOXINE [Concomitant]
     Route: 064
  3. TYLENOL (CAPLET) [Concomitant]
     Route: 064
     Dates: start: 20080610, end: 20080610
  4. TYLENOL W/ CODEINE NO. 3 [Concomitant]
     Route: 064
     Dates: start: 20080728, end: 20080728
  5. UNISOM (DIPHENHYDRAMINE HYDROCHLORIDE) [Concomitant]
     Route: 064

REACTIONS (1)
  - INTRA-UTERINE DEATH [None]
